FAERS Safety Report 6266188-5 (Version None)
Quarter: 2009Q3

REPORT INFORMATION
  Report Type: 
  Country: None (occurrence: None)
  Receive Date: 20090713
  Receipt Date: 20090708
  Transmission Date: 20100115
  Serious: Yes (Hospitalization)
  Sender: FDA-Public Use
  Company Number: DE-TEVA-201550ISR

PATIENT
  Age: 78 Year
  Sex: Male

DRUGS (1)
  1. DICLOFENAC [Suspect]

REACTIONS (3)
  - BLEEDING TIME PROLONGED [None]
  - COMPARTMENT SYNDROME [None]
  - PLATELET FUNCTION TEST ABNORMAL [None]
